FAERS Safety Report 14211122 (Version 1)
Quarter: 2017Q4

REPORT INFORMATION
  Report Type: Other
  Country: US (occurrence: US)
  Receive Date: 20171121
  Receipt Date: 20171121
  Transmission Date: 20180321
  Serious: Yes (Other)
  Sender: FDA-Public Use
  Company Number: US-THE PROACTIV LLC-2034781

PATIENT
  Age: 66 Year
  Sex: Female

DRUGS (6)
  1. PROACTIV RENEWING CLEANSER [Suspect]
     Active Substance: BENZOYL PEROXIDE
     Indication: ACNE
     Route: 061
     Dates: start: 20170825, end: 20171023
  2. PROACTIV REPAIRING TREATMENT [Suspect]
     Active Substance: BENZOYL PEROXIDE
     Route: 061
     Dates: start: 20170825, end: 20171023
  3. PROACTIV SKIN PURIFYING MASK [Suspect]
     Active Substance: SULFUR
     Route: 061
     Dates: start: 20170825, end: 20171023
  4. UNDISCLOSED INHALER FOR ASTHMA [Concomitant]
  5. PROACTIVPLUS REPAIRING CONCEALER (LIGHT/MEDIUM/TAN/DARK) [Suspect]
     Active Substance: SALICYLIC ACID
     Route: 061
     Dates: start: 20170825, end: 20171023
  6. VITAMIN B [Concomitant]
     Active Substance: VITAMIN B

REACTIONS (1)
  - Dyspnoea [Recovered/Resolved]

NARRATIVE: CASE EVENT DATE: 20170825
